FAERS Safety Report 7052661-9 (Version None)
Quarter: 2010Q4

REPORT INFORMATION
  Report Type: 
  Country: None (occurrence: None)
  Receive Date: 20101019
  Receipt Date: 20101008
  Transmission Date: 20110411
  Serious: Yes (Hospitalization)
  Sender: FDA-Public Use
  Company Number: RU-GENENTECH-293655

PATIENT
  Sex: Female
  Weight: 63 kg

DRUGS (3)
  1. MABTHERA [Suspect]
     Indication: RHEUMATOID ARTHRITIS
     Dosage: 1000 MG, Q2W
     Route: 042
     Dates: start: 20071213
  2. LEUKERAN [Concomitant]
     Indication: RHEUMATOID ARTHRITIS
     Dosage: UNK
     Route: 048
     Dates: start: 20060601
  3. PREDNISOLONE [Concomitant]
     Indication: RHEUMATOID ARTHRITIS
     Dosage: 5 MG, UNK
     Dates: start: 20080820, end: 20091029

REACTIONS (6)
  - BRONCHITIS [None]
  - CATARACT [None]
  - CATARACT NUCLEAR [None]
  - INTRAOCULAR LENS IMPLANT [None]
  - PULMONARY TUBERCULOSIS [None]
  - ULCERATIVE KERATITIS [None]
